FAERS Safety Report 5029396-7 (Version None)
Quarter: 2006Q2

REPORT INFORMATION
  Report Type: 
  Country: None (occurrence: None)
  Receive Date: 20060614
  Receipt Date: 20060525
  Transmission Date: 20061013
  Serious: Yes (Other)
  Sender: FDA-Public Use
  Company Number: 2006030415

PATIENT
  Age: 61 Year
  Sex: Male

DRUGS (1)
  1. BEXTRA [Suspect]
     Indication: PSORIATIC ARTHROPATHY
     Dosage: 10 MG
     Dates: start: 20030826

REACTIONS (3)
  - DISEASE RECURRENCE [None]
  - PSORIASIS [None]
  - STEVENS-JOHNSON SYNDROME [None]
